FAERS Safety Report 12299444 (Version 1)
Quarter: 2016Q2

REPORT INFORMATION
  Report Type: Spontaneous
  Country: US (occurrence: None)
  Receive Date: 20160422
  Receipt Date: 20160422
  Transmission Date: 20160815
  Serious: No
  Sender: FDA-Public Use
  Company Number: None

PATIENT
  Age: 63 Year
  Sex: Female

DRUGS (11)
  1. DESONIDE CREAM USP 0.05% [Concomitant]
     Active Substance: DESONIDE
  2. PREDNISONE. [Concomitant]
     Active Substance: PREDNISONE
  3. VENTOLIN HFA [Concomitant]
     Active Substance: ALBUTEROL SULFATE
  4. HARVONI [Suspect]
     Active Substance: LEDIPASVIR\SOFOSBUVIR
     Indication: HEPATITIS C
     Route: 048
     Dates: start: 20160324, end: 20160421
  5. ECONAZOLE CREAM [Concomitant]
  6. FUROSEMIDE. [Concomitant]
     Active Substance: FUROSEMIDE
  7. LISINOPRIL/HCTZ [Concomitant]
     Active Substance: HYDROCHLOROTHIAZIDE\LISINOPRIL
  8. ONDANSETERON [Concomitant]
  9. GABAPENTIN. [Concomitant]
     Active Substance: GABAPENTIN
  10. AZITHROMYCIN ANHYDROUS. [Concomitant]
     Active Substance: AZITHROMYCIN ANHYDROUS
  11. CLOBETASOL CREAM [Concomitant]
     Active Substance: CLOBETASOL

REACTIONS (3)
  - Pruritus [None]
  - Rash generalised [None]
  - Blister [None]

NARRATIVE: CASE EVENT DATE: 20160407
